FAERS Safety Report 8882327 (Version 1)
Quarter: 2012Q4

REPORT INFORMATION
  Report Type: 
  Country: PL (occurrence: PL)
  Receive Date: 20121105
  Receipt Date: 20121105
  Transmission Date: 20130627
  Serious: Yes (Other)
  Sender: FDA-Public Use
  Company Number: PHHY2012PL097777

PATIENT
  Age: 27 Year
  Sex: Male

DRUGS (9)
  1. CICLOSPORIN [Suspect]
     Indication: PUSTULAR PSORIASIS
     Dosage: 3 mg/kg, UNK
  2. CICLOSPORIN [Suspect]
     Dosage: 100 mg, UNK
  3. CICLOSPORIN [Suspect]
     Dosage: 3-5 mg/kg, UNK
  4. CICLOSPORIN [Suspect]
     Dosage: 100 mg, UNK
  5. METHOTREXATE [Concomitant]
     Indication: PUSTULAR PSORIASIS
     Dosage: 7.5 mg, QW
  6. INFLIXIMAB [Concomitant]
     Indication: PUSTULAR PSORIASIS
     Dosage: 3 mg/kg, UNK
  7. INFLIXIMAB [Concomitant]
     Dosage: 25 mg, UNK
  8. ACITRETIN [Concomitant]
     Indication: PUSTULAR PSORIASIS
     Dosage: 50 mg, UNK
  9. ACITRETIN [Concomitant]
     Dosage: 25 mg, UNK

REACTIONS (12)
  - Erythema multiforme [Recovered/Resolved]
  - Psoriatic arthropathy [Recovered/Resolved]
  - Acanthosis [Recovered/Resolved]
  - Oropharyngeal pain [Recovered/Resolved]
  - Dermatitis exfoliative [Recovered/Resolved]
  - Staphylococcus test positive [Recovered/Resolved]
  - Acinetobacter test positive [Recovered/Resolved]
  - Skin lesion [Recovered/Resolved]
  - Pyrexia [Recovered/Resolved]
  - Rash erythematous [Recovered/Resolved]
  - Skin hyperpigmentation [Recovered/Resolved]
  - Arthralgia [Recovered/Resolved]
